FAERS Safety Report 5215043-8 (Version None)
Quarter: 2007Q1

REPORT INFORMATION
  Report Type: 
  Country: None (occurrence: None)
  Receive Date: 20070122
  Receipt Date: 20070117
  Transmission Date: 20070707
  Serious: Yes (Other)
  Sender: FDA-Public Use
  Company Number: US-MERCK-0701USA02466

PATIENT
  Age: 61 Year
  Sex: Female

DRUGS (1)
  1. VYTORIN [Suspect]
     Route: 048
     Dates: start: 20050501, end: 20060814

REACTIONS (3)
  - MUSCLE SPASMS [None]
  - PAIN [None]
  - RENAL FAILURE [None]
